FAERS Safety Report 5254738-7 (Version None)
Quarter: 2007Q1

REPORT INFORMATION
  Report Type: 
  Country: None (occurrence: None)
  Receive Date: 20070228
  Receipt Date: 20070212
  Transmission Date: 20070707
  Serious: Yes (Hospitalization, Other)
  Sender: FDA-Public Use
  Company Number: 8021223

PATIENT
  Age: 33 Year
  Sex: Female
  Weight: 47.5 kg

DRUGS (5)
  1. KEPPRA [Suspect]
     Indication: CONVULSION
     Dosage: 1000 MCG 2/D PO
     Route: 048
     Dates: start: 20061201, end: 20070110
  2. LAMICTAL [Suspect]
     Indication: CONVULSION
     Dosage: NI PO
     Route: 048
     Dates: start: 20061201, end: 20070110
  3. IMITREX [Concomitant]
  4. LEXAPRO [Concomitant]
  5. RELAFEN [Concomitant]

REACTIONS (13)
  - ALANINE AMINOTRANSFERASE INCREASED [None]
  - ASPARTATE AMINOTRANSFERASE INCREASED [None]
  - BLOOD ALKALINE PHOSPHATASE INCREASED [None]
  - CONDITION AGGRAVATED [None]
  - HEADACHE [None]
  - HYPERSENSITIVITY [None]
  - LEUKOPENIA [None]
  - LIP DISORDER [None]
  - LYMPHOPENIA [None]
  - ORAL DISCOMFORT [None]
  - PYREXIA [None]
  - STEVENS-JOHNSON SYNDROME [None]
  - TOXIC EPIDERMAL NECROLYSIS [None]
